FAERS Safety Report 6140387-5 (Version None)
Quarter: 2009Q1

REPORT INFORMATION
  Report Type: 
  Country: None (occurrence: None)
  Receive Date: 20090331
  Receipt Date: 20090317
  Transmission Date: 20090719
  Serious: Yes (Hospitalization)
  Sender: FDA-Public Use
  Company Number: 232937K09USA

PATIENT
  Age: 62 Year
  Sex: Female
  Weight: 109 kg

DRUGS (8)
  1. REBIF [Suspect]
     Indication: MULTIPLE SCLEROSIS
     Dosage: 44 MCG, 3 IN 1 WEEKS, SUBCUTANEOUS
     Route: 058
     Dates: start: 20071010
  2. CYMBALTA [Suspect]
     Indication: DEPRESSION
     Dates: start: 20070101
  3. ASPIRIN [Suspect]
     Indication: HEADACHE
     Dosage: 500 MG, 1 IN 1 DAYS; 500 MG, 2 IN 1 DAY
     Dates: start: 20081101, end: 20090228
  4. ASPIRIN [Suspect]
     Indication: HEADACHE
     Dosage: 500 MG, 1 IN 1 DAYS; 500 MG, 2 IN 1 DAY
     Dates: start: 20081101, end: 20090228
  5. IMITREX [Suspect]
     Indication: MIGRAINE
  6. LANTUS INSULIN (INSULIN /.00030501/) [Concomitant]
  7. HUMALOG INSULIN (INSULIN LISPRO) [Concomitant]
  8. QUININE OVER-THE-COUNTER (QUININE /00046701/) [Concomitant]

REACTIONS (7)
  - ANAEMIA [None]
  - EAR DISCOMFORT [None]
  - ECZEMA [None]
  - HEADACHE [None]
  - MIGRAINE [None]
  - NASAL DISCOMFORT [None]
  - NO THERAPEUTIC RESPONSE [None]
